FAERS Safety Report 5353074-8 (Version None)
Quarter: 2007Q2

REPORT INFORMATION
  Report Type: 
  Country: None (occurrence: None)
  Receive Date: 20070611
  Receipt Date: 20070530
  Transmission Date: 20071010
  Serious: Yes (Other)
  Sender: FDA-Public Use
  Company Number: JP-PFIZER INC-2007044887

PATIENT
  Age: 45 Year
  Sex: Male

DRUGS (3)
  1. NORVASC [Suspect]
     Dosage: TEXT:60 TABLETS
     Route: 048
  2. ACE INHIBITOR NOS [Suspect]
     Dosage: TEXT:60 TABLETS
  3. BETA BLOCKING AGENTS [Suspect]
     Dosage: TEXT:60 TABLETS

REACTIONS (3)
  - BLOOD PRESSURE DECREASED [None]
  - DYSPNOEA [None]
  - SUICIDE ATTEMPT [None]
